FAERS Safety Report 16214722 (Version 1)
Quarter: 2019Q2

REPORT INFORMATION
  Report Type: Spontaneous
  Country: FR (occurrence: FR)
  Receive Date: 20190418
  Receipt Date: 20190418
  Transmission Date: 20190711
  Serious: Yes (Hospitalization)
  Sender: FDA-Public Use
  Company Number: PHHY2019FR087451

PATIENT
  Age: 66 Year
  Sex: Female

DRUGS (5)
  1. MESNA EG [Suspect]
     Active Substance: MESNA
     Indication: PROPHYLAXIS
     Dosage: 3 OT, (1192 MG X 3)
     Route: 042
  2. ONDANSETRON [Suspect]
     Active Substance: ONDANSETRON
     Indication: PROPHYLAXIS OF NAUSEA AND VOMITING
     Dosage: 8 MG, UNK
     Route: 042
  3. IFOSFAMIDE EG [Suspect]
     Active Substance: IFOSFAMIDE
     Indication: SYNOVIAL SARCOMA
     Dosage: 3575 MG, UNK
     Route: 042
  4. DOXORUBICINE [Suspect]
     Active Substance: DOXORUBICIN
     Indication: LUNG NEOPLASM MALIGNANT
     Dosage: 72 MG, UNK
     Route: 042
  5. SOLU-MEDROL [Suspect]
     Active Substance: METHYLPREDNISOLONE SODIUM SUCCINATE
     Indication: PROPHYLAXIS
     Dosage: 80 MG, UNK
     Route: 042

REACTIONS (1)
  - Toxic encephalopathy [Recovering/Resolving]

NARRATIVE: CASE EVENT DATE: 20190330
